FAERS Safety Report 25993401 (Version 5)
Quarter: 2025Q4

REPORT INFORMATION
  Report Type: Spontaneous
  Country: JP (occurrence: JP)
  Receive Date: 20251104
  Receipt Date: 20251209
  Transmission Date: 20260117
  Serious: Yes (Death, Hospitalization, Other)
  Sender: GENMAB
  Company Number: JP-GENMAB-2025-01368

PATIENT
  Age: 77 Year
  Sex: Male
  Weight: 60 kg

DRUGS (11)
  1. EPKINLY [Suspect]
     Active Substance: EPCORITAMAB-BYSP
     Indication: Diffuse large B-cell lymphoma refractory
     Dosage: UNK
     Route: 058
     Dates: start: 20250414, end: 202504
  2. EPKINLY [Suspect]
     Active Substance: EPCORITAMAB-BYSP
     Dosage: 48 MILLIGRAM, FIRST FULL DOSE
     Route: 058
     Dates: start: 20250428, end: 20250428
  3. EPKINLY [Suspect]
     Active Substance: EPCORITAMAB-BYSP
     Dosage: 48 MILLIGRAM
     Route: 058
     Dates: start: 20250507, end: 20250507
  4. EPKINLY [Suspect]
     Active Substance: EPCORITAMAB-BYSP
     Dosage: 48 MILLIGRAM, CYCLE 7
     Route: 058
     Dates: start: 20250527, end: 20251002
  5. DEXAMETHASONE [Suspect]
     Active Substance: DEXAMETHASONE
     Indication: Prophylaxis
     Dosage: UNK, ON DAY 1 OF ADMINISTRATION OF EPKINLY, AT THE FIRST ADMINISTRATION IN CYCLE 1
     Dates: start: 20250414, end: 20250414
  6. SULFAMETHOXAZOLE\TRIMETHOPRIM [Concomitant]
     Active Substance: SULFAMETHOXAZOLE\TRIMETHOPRIM
     Indication: Prophylaxis
     Dosage: UNK
  7. PILSICAINIDE HYDROCHLORIDE [Concomitant]
     Active Substance: PILSICAINIDE HYDROCHLORIDE
     Indication: Arrhythmia
     Dosage: UNK, FROM BEFORE EPKINLY ADMINISTRATION
  8. VERAPAMIL HYDROCHLORIDE [Concomitant]
     Active Substance: VERAPAMIL HYDROCHLORIDE
     Indication: Arrhythmia
     Dosage: UNK, FROM BEFORE EPKINLY ADMINISTRATION
  9. MAGNESIUM OXIDE [Concomitant]
     Active Substance: MAGNESIUM OXIDE
     Indication: Constipation
     Dosage: UNK, FROM BEFORE EPKINLY ADMINISTRATION
  10. BISOPROLOL FUMARATE [Concomitant]
     Active Substance: BISOPROLOL FUMARATE
     Indication: Arrhythmia
     Dosage: UNK, FROM BEFORE EPKINLY ADMINISTRATION
  11. ESZOPICLONE [Concomitant]
     Active Substance: ESZOPICLONE
     Indication: Insomnia
     Dosage: UNK, FROM BEFORE EPKINLY ADMINISTRATION

REACTIONS (5)
  - Cerebral disorder [Fatal]
  - Progressive multifocal leukoencephalopathy [Not Recovered/Not Resolved]
  - Cytokine release syndrome [Recovered/Resolved]
  - Steroid diabetes [Not Recovered/Not Resolved]
  - Full blood count decreased [Recovering/Resolving]

NARRATIVE: CASE EVENT DATE: 20250502
